FAERS Safety Report 7999131-9 (Version None)
Quarter: 2011Q4

REPORT INFORMATION
  Report Type: 
  Country: None (occurrence: None)
  Receive Date: 20111221
  Receipt Date: 20111219
  Transmission Date: 20120403
  Serious: Yes (Other)
  Sender: FDA-Public Use
  Company Number: US-US-EMD SERONO, INC.-233180J10USA

PATIENT
  Sex: Female

DRUGS (4)
  1. UNSPECIFIED MEDICATIONS [Concomitant]
  2. REBIF [Suspect]
     Indication: MULTIPLE SCLEROSIS
     Route: 058
     Dates: start: 20090923
  3. PREDNISONE TAB [Concomitant]
     Indication: AUTOIMMUNE DISORDER
     Route: 065
     Dates: start: 20090101
  4. PREDNISONE TAB [Concomitant]
     Indication: POLYARTHRITIS
     Route: 065

REACTIONS (8)
  - CATARACT [None]
  - PULMONARY FUNCTION TEST DECREASED [None]
  - ANAEMIA OF CHRONIC DISEASE [None]
  - INJECTION SITE PAIN [None]
  - INJECTION SITE HAEMATOMA [None]
  - DIAPHRAGMATIC PARALYSIS [None]
  - INJECTION SITE REACTION [None]
  - INJECTION SITE ERYTHEMA [None]
